FAERS Safety Report 8517140-8 (Version None)
Quarter: 2012Q3

REPORT INFORMATION
  Report Type: 
  Country: None (occurrence: None)
  Receive Date: 20120718
  Receipt Date: 20120713
  Transmission Date: 20120928
  Serious: Yes (Hospitalization)
  Sender: FDA-Public Use
  Company Number: US-AMGEN-USACT2012040997

PATIENT
  Age: 49 Year
  Sex: Female
  Weight: 82.73 kg

DRUGS (18)
  1. CYCLOPHOSPHAMIDE [Concomitant]
     Dosage: UNK
     Dates: start: 20120403, end: 20120515
  2. ADRIAMYCIN PFS [Concomitant]
     Dosage: UNK
     Dates: start: 20120403, end: 20120515
  3. VITAMIN D [Concomitant]
     Dosage: 400 IU, UNK
     Route: 048
     Dates: start: 20120502
  4. LORATADINE [Concomitant]
     Dosage: 10 MG, UNK
     Route: 048
     Dates: start: 20120619
  5. TAXOL [Concomitant]
  6. NEXIUM [Concomitant]
     Dosage: 40 MG, UNK
     Route: 048
     Dates: start: 20120529
  7. DENOSUMAB [Suspect]
     Indication: BREAST CANCER
     Dosage: 120 MG, UNK
     Route: 058
     Dates: start: 20120502
  8. CITALOPRAM HYDROBROMIDE [Concomitant]
     Dosage: 20 MUG, UNK
     Route: 048
     Dates: start: 20120612
  9. NEULASTA [Concomitant]
     Dosage: 6 MG, UNK
     Route: 058
     Dates: start: 20120327
  10. ATIVAN [Concomitant]
     Dosage: 1 MG, UNK
     Route: 048
     Dates: start: 20120501
  11. COREG [Concomitant]
     Dosage: 3.125 MG, UNK
     Route: 048
     Dates: start: 20120515
  12. CAPHOSOL [Concomitant]
     Dosage: 30 ML, UNK
     Route: 050
     Dates: start: 20120412
  13. AMARYL [Concomitant]
     Dosage: 4 MG, UNK
     Route: 048
     Dates: start: 20120308
  14. PRILOSEC [Concomitant]
     Dosage: 20 MG, UNK
     Route: 048
     Dates: start: 20120529
  15. CALCIUM [Concomitant]
     Dosage: 500 MG, UNK
     Route: 048
     Dates: start: 20120502
  16. TRAZAMINE [Concomitant]
     Dosage: 50 MG, UNK
     Route: 048
     Dates: start: 20120308
  17. LOVASTATIN [Concomitant]
     Dosage: 20 MG, UNK
     Route: 048
     Dates: start: 20120308
  18. METFORMIN HYDROCHLORIDE [Concomitant]
     Dosage: 500 MG, UNK
     Route: 048
     Dates: start: 20120308

REACTIONS (3)
  - PYREXIA [None]
  - HYPERGLYCAEMIA [None]
  - PYELONEPHRITIS ACUTE [None]
